FAERS Safety Report 19725483 (Version 4)
Quarter: 2021Q4

REPORT INFORMATION
  Report Type: Spontaneous
  Country: NL (occurrence: NL)
  Receive Date: 20210819
  Receipt Date: 20211026
  Transmission Date: 20220303
  Serious: Yes (Other)
  Sender: FDA-Public Use
  Company Number: NVSC2021NL182188

PATIENT
  Sex: Female

DRUGS (1)
  1. PANTOPRAZOLE [Suspect]
     Active Substance: PANTOPRAZOLE
     Indication: Product used for unknown indication
     Dosage: 40 MG, 90 TBL
     Route: 065

REACTIONS (6)
  - Brugada syndrome [Unknown]
  - Renal impairment [Unknown]
  - Dyspepsia [Unknown]
  - Allergic reaction to excipient [Unknown]
  - Illness [Unknown]
  - Product appearance confusion [Unknown]
